FAERS Safety Report 6645175-9 (Version None)
Quarter: 2010Q1

REPORT INFORMATION
  Report Type: 
  Country: None (occurrence: None)
  Receive Date: 20100322
  Receipt Date: 20061206
  Transmission Date: 20100710
  Serious: Yes (Hospitalization)
  Sender: FDA-Public Use
  Company Number: IL-SANOFI-AVENTIS-F01200602296

PATIENT
  Age: 69 Year
  Sex: Male
  Weight: 85 kg

DRUGS (5)
  1. LEUPRORELIN ACETATE [Suspect]
     Indication: PROSTATE CANCER
     Route: 058
     Dates: start: 20061019, end: 20061019
  2. DOCETAXEL [Suspect]
     Indication: PROSTATE CANCER
     Dosage: UNIT DOSE: 75 MG/M2
     Route: 042
     Dates: start: 20061019, end: 20061019
  3. ENALAPRIL MALEATE [Concomitant]
     Dosage: DOSE TEXT: 20 MG
     Route: 048
  4. SIMVASTATIN [Concomitant]
     Dosage: DOSE TEXT: 20 MG
     Route: 048
  5. GASTRO [Concomitant]
     Dosage: DOSE TEXT: 20 MG
     Route: 048

REACTIONS (1)
  - PYREXIA [None]
